FAERS Safety Report 25385469 (Version 2)
Quarter: 2025Q3

REPORT INFORMATION
  Report Type: Spontaneous
  Country: JP (occurrence: JP)
  Receive Date: 20250602
  Receipt Date: 20250708
  Transmission Date: 20251021
  Serious: Yes (Hospitalization, Other)
  Sender: CSL BEHRING
  Company Number: JP-BEH-2025207462

PATIENT
  Age: 9 Year
  Sex: Male

DRUGS (1)
  1. HUMAN IMMUNOGLOBULIN G [Suspect]
     Active Substance: HUMAN IMMUNOGLOBULIN G
     Indication: Hypogammaglobulinaemia
     Route: 065

REACTIONS (10)
  - Pyrexia [Unknown]
  - Dyspnoea [Unknown]
  - Arthralgia [Unknown]
  - Back pain [Unknown]
  - Pollakiuria [Unknown]
  - Respiratory failure [Unknown]
  - Lung infiltration [Unknown]
  - Lymphadenopathy [Unknown]
  - Hepatosplenomegaly [Unknown]
  - Inflammatory marker increased [Unknown]
